FAERS Safety Report 17565207 (Version 1)
Quarter: 2020Q1

REPORT INFORMATION
  Report Type: Spontaneous
  Country: US (occurrence: US)
  Receive Date: 20200320
  Receipt Date: 20200320
  Transmission Date: 20200409
  Serious: Yes (Life-Threatening, Other)
  Sender: FDA-Public Use
  Company Number: US-ACCORD-176579

PATIENT
  Age: 44 Year
  Sex: Female
  Weight: 72 kg

DRUGS (2)
  1. CISPLATIN. [Suspect]
     Active Substance: CISPLATIN
     Indication: FALLOPIAN TUBE CANCER STAGE III
     Route: 042
  2. PACLITAXEL. [Suspect]
     Active Substance: PACLITAXEL
     Indication: FALLOPIAN TUBE CANCER STAGE III
     Route: 042

REACTIONS (7)
  - Abdominal pain [Unknown]
  - Type V hyperlipidaemia [Recovered/Resolved]
  - Diabetes mellitus [Recovering/Resolving]
  - Off label use [Unknown]
  - Vomiting [Unknown]
  - Hypertriglyceridaemia [Recovered/Resolved]
  - Nausea [Unknown]
